FAERS Safety Report 5493264-7 (Version None)
Quarter: 2007Q4

REPORT INFORMATION
  Report Type: 
  Country: None (occurrence: None)
  Receive Date: 20071022
  Receipt Date: 20071022
  Transmission Date: 20080405
  Serious: Yes (Hospitalization)
  Sender: FDA-Public Use
  Company Number: None

PATIENT
  Age: 75 Year
  Sex: Male

DRUGS (3)
  1. LITHIUM CARBONATE [Suspect]
     Indication: BIPOLAR DISORDER
     Dosage: 900 MG EVERY DAY PO
     Route: 048
     Dates: start: 20050914, end: 20070813
  2. LITHIUM CARBONATE [Suspect]
     Indication: MANIA
     Dosage: 900 MG EVERY DAY PO
     Route: 048
     Dates: start: 20050914, end: 20070813
  3. LISINOPRIL AND HYDROCHLOROTHIAZIDE [Suspect]
     Indication: HYPERTENSION
     Dosage: 12.5/20MG EVERY DAY PO
     Route: 048
     Dates: start: 20070518, end: 20070813

REACTIONS (4)
  - DIARRHOEA [None]
  - FLUID INTAKE REDUCED [None]
  - RENAL FAILURE ACUTE [None]
  - THERAPEUTIC AGENT TOXICITY [None]
